FAERS Safety Report 20782931 (Version 2)
Quarter: 2022Q2

REPORT INFORMATION
  Report Type: Report from Study
  Country: NL (occurrence: None)
  Receive Date: 20220504
  Receipt Date: 20220506
  Transmission Date: 20220720
  Serious: Yes (Death, Hospitalization)
  Sender: FDA-Public Use
  Company Number: NL-ROCHE-3061783

PATIENT
  Age: 60 Year
  Sex: Female

DRUGS (7)
  1. OBINUTUZUMAB [Suspect]
     Active Substance: OBINUTUZUMAB
     Indication: Chronic lymphocytic leukaemia
     Dosage: THE LAST DOSE OF OBINUTUZUMAB WAS 1000 MG ON 02/MAR/2022
     Route: 042
     Dates: start: 20211028, end: 20220302
  2. VENETOCLAX [Suspect]
     Active Substance: VENETOCLAX
     Indication: Chronic lymphocytic leukaemia
     Dosage: THE LAST DOSE OF VENETOCLAX WAS 16/MAR/2022?MOST RECENT LAST DOSE OF VENETOCLAX WAS 25/MAR/2022
     Route: 048
     Dates: start: 20211118, end: 20220316
  3. ALBUTEROL [Concomitant]
     Active Substance: ALBUTEROL
  4. SERETIDE [Concomitant]
     Active Substance: FLUTICASONE PROPIONATE\SALMETEROL XINAFOATE
  5. FUROSEMIDE [Concomitant]
     Active Substance: FUROSEMIDE
     Dates: start: 20220427, end: 20220427
  6. MIDAZOLAM [Concomitant]
     Active Substance: MIDAZOLAM
     Dates: start: 20220503, end: 20220503
  7. DICLOFENAC [Concomitant]
     Active Substance: DICLOFENAC
     Dates: start: 20220503, end: 20220503

REACTIONS (2)
  - Pneumonia [Recovered/Resolved with Sequelae]
  - Herpes simplex pneumonia [Fatal]

NARRATIVE: CASE EVENT DATE: 20220317
